FAERS Safety Report 21609799 (Version 2)
Quarter: 2022Q4

REPORT INFORMATION
  Report Type: Report from Study
  Country: US (occurrence: US)
  Receive Date: 20221117
  Receipt Date: 20221205
  Transmission Date: 20230113
  Serious: Yes (Hospitalization, Other)
  Sender: FDA-Public Use
  Company Number: US-BRISTOL-MYERS SQUIBB COMPANY-2022-109139

PATIENT
  Age: 82 Year
  Sex: Female
  Weight: 78.02 kg

DRUGS (1)
  1. REVLIMID [Suspect]
     Active Substance: LENALIDOMIDE
     Indication: Plasma cell myeloma
     Dosage: DAILY FOR 3 WEEKS ON AND 1 WEEK OFF
     Route: 048

REACTIONS (6)
  - Sternal fracture [Recovered/Resolved]
  - Rhinorrhoea [Not Recovered/Not Resolved]
  - COVID-19 [Recovered/Resolved]
  - Road traffic accident [Recovered/Resolved]
  - Contusion [Recovered/Resolved]
  - Respiratory syncytial virus infection [Recovered/Resolved]

NARRATIVE: CASE EVENT DATE: 20221026
